FAERS Safety Report 26151788 (Version 1)
Quarter: 2025Q4

REPORT INFORMATION
  Report Type: Report from Study
  Country: US (occurrence: US)
  Receive Date: 20251214
  Receipt Date: 20251214
  Transmission Date: 20260117
  Serious: Yes (Other)
  Sender: JAZZ
  Company Number: US-JAZZ-2022-US-028510

PATIENT
  Sex: Male

DRUGS (4)
  1. XYREM [Suspect]
     Active Substance: SODIUM OXYBATE
     Indication: Narcolepsy
     Dosage: 3.75 GRAM, BID
  2. XYREM [Suspect]
     Active Substance: SODIUM OXYBATE
     Dosage: 4.5 GRAMS AT BEDTIME, 3 GRAMS 2.5-4 HOURS LATER, AND 1.5 GRAMS 2 HOURS AFTER SECOND DOSE
  3. XYREM [Suspect]
     Active Substance: SODIUM OXYBATE
     Dosage: TAKES 6 ML (3 GRAMS) AT BEDTIME, TAKES (7.5 ML) 3.75 GRAM 2.5 TO 4 HOURS LATER
  4. NUVIGIL [Concomitant]
     Active Substance: ARMODAFINIL
     Indication: Product used for unknown indication
     Dosage: UNK

REACTIONS (8)
  - Radial nerve palsy [Unknown]
  - Adverse drug reaction [Unknown]
  - Unevaluable event [Unknown]
  - Cough [Unknown]
  - Thirst [Unknown]
  - Drug intolerance [Unknown]
  - Treatment noncompliance [Unknown]
  - Off label use [Unknown]
